FAERS Safety Report 14624593 (Version 2)
Quarter: 2018Q1

REPORT INFORMATION
  Report Type: Spontaneous
  Country: AR (occurrence: AR)
  Receive Date: 20180312
  Receipt Date: 20180314
  Transmission Date: 20180509
  Serious: Yes (Life-Threatening)
  Sender: FDA-Public Use
  Company Number: PHHY2018AR040886

PATIENT
  Sex: Male

DRUGS (1)
  1. SIMBRINZA [Suspect]
     Active Substance: BRIMONIDINE TARTRATE\BRINZOLAMIDE
     Indication: OPEN ANGLE GLAUCOMA
     Dosage: 1 GTT, Q12H
     Route: 047
     Dates: start: 20180206, end: 20180228

REACTIONS (4)
  - Dry mouth [Unknown]
  - Tachycardia [Unknown]
  - Intraocular pressure fluctuation [Unknown]
  - Feeling abnormal [Unknown]
